FAERS Safety Report 21896323 (Version 2)
Quarter: 2025Q1

REPORT INFORMATION
  Report Type: Spontaneous
  Country: DE (occurrence: DE)
  Receive Date: 20230123
  Receipt Date: 20250214
  Transmission Date: 20250409
  Serious: Yes (Other)
  Sender: ALKEM
  Company Number: DE-ALKEM LABORATORIES LIMITED-DE-ALKEM-2022-10810

PATIENT
  Age: 43 Year
  Sex: Female

DRUGS (4)
  1. FINGOLIMOD [Suspect]
     Active Substance: FINGOLIMOD
     Indication: Product used for unknown indication
     Route: 065
     Dates: start: 20200214
  2. OCRELIZUMAB [Suspect]
     Active Substance: OCRELIZUMAB
     Indication: Relapsing multiple sclerosis
     Route: 042
     Dates: start: 20200129, end: 20200129
  3. OCRELIZUMAB [Suspect]
     Active Substance: OCRELIZUMAB
     Route: 065
     Dates: start: 20200129
  4. FINGOLIMOD [Concomitant]
     Active Substance: FINGOLIMOD
     Indication: Lymphopenia
     Route: 065

REACTIONS (1)
  - Lymphopenia [Recovering/Resolving]

NARRATIVE: CASE EVENT DATE: 20200214
